FAERS Safety Report 10159594 (Version 1)
Quarter: 2014Q2

REPORT INFORMATION
  Report Type: Spontaneous
  Country: US (occurrence: None)
  Receive Date: 20140507
  Receipt Date: 20140507
  Transmission Date: 20141212
  Serious: Yes (Disabling)
  Sender: FDA-Public Use
  Company Number: None

PATIENT
  Age: 68 Year
  Sex: Male
  Weight: 83.01 kg

DRUGS (2)
  1. RABEPRAZOLE [Suspect]
     Indication: GASTRIC PH DECREASED
     Dosage: 4 PILLS DAILY THREE TIMES DAILY
     Route: 048
     Dates: start: 20140504, end: 20140504
  2. RABEPRAZOLE [Suspect]
     Indication: GASTROOESOPHAGEAL REFLUX DISEASE
     Dosage: 4 PILLS DAILY THREE TIMES DAILY
     Route: 048
     Dates: start: 20140504, end: 20140504

REACTIONS (6)
  - Drug effect decreased [None]
  - Product substitution issue [None]
  - Gastric pH decreased [None]
  - Pain [None]
  - Insomnia [None]
  - Product quality issue [None]
